FAERS Safety Report 17312790 (Version 1)
Quarter: 2020Q1

REPORT INFORMATION
  Report Type: Spontaneous
  Country: GB (occurrence: GB)
  Receive Date: 20200123
  Receipt Date: 20200123
  Transmission Date: 20200409
  Serious: Yes (Hospitalization)
  Sender: FDA-Public Use
  Company Number: GB-TEVA-2020-GB-1171976

PATIENT
  Age: 83 Year
  Sex: Male

DRUGS (6)
  1. FELODIPINE. [Concomitant]
     Active Substance: FELODIPINE
  2. RAMIPRIL. [Concomitant]
     Active Substance: RAMIPRIL
  3. DIAZEPAM. [Suspect]
     Active Substance: DIAZEPAM
     Indication: ANXIETY
     Dosage: 6 MILLIGRAM DAILY; 2MG THREE TIMES A DAY.
     Dates: start: 20191223, end: 20191225
  4. INDAPAMIDE. [Concomitant]
     Active Substance: INDAPAMIDE
  5. MIRTAZAPINE. [Concomitant]
     Active Substance: MIRTAZAPINE
  6. SIMVASTATIN. [Concomitant]
     Active Substance: SIMVASTATIN

REACTIONS (3)
  - Somnolence [Recovering/Resolving]
  - Lethargy [Recovering/Resolving]
  - Fall [Recovering/Resolving]

NARRATIVE: CASE EVENT DATE: 20191225
